FAERS Safety Report 12525772 (Version 1)
Quarter: 2016Q3

REPORT INFORMATION
  Report Type: Spontaneous
  Country: US (occurrence: US)
  Receive Date: 20160705
  Receipt Date: 20160705
  Transmission Date: 20161109
  Serious: No
  Sender: FDA-Public Use
  Company Number: US-BIOGEN-2016BI00260107

PATIENT
  Sex: Female

DRUGS (1)
  1. AVONEX [Suspect]
     Active Substance: INTERFERON BETA-1A
     Indication: MULTIPLE SCLEROSIS
     Route: 065
     Dates: start: 20030829

REACTIONS (10)
  - Malaise [Recovered/Resolved]
  - Oesophageal disorder [Not Recovered/Not Resolved]
  - Foreign body [Recovered/Resolved]
  - Subcutaneous abscess [Not Recovered/Not Resolved]
  - Upper limb fracture [Unknown]
  - Eye disorder [Not Recovered/Not Resolved]
  - Fall [Unknown]
  - Drug intolerance [Recovered/Resolved]
  - Memory impairment [Not Recovered/Not Resolved]
  - Multiple sclerosis relapse [Unknown]
